FAERS Safety Report 6896605-9 (Version None)
Quarter: 2010Q3

REPORT INFORMATION
  Report Type: 
  Country: None (occurrence: None)
  Receive Date: 20100802
  Receipt Date: 20070108
  Transmission Date: 20110219
  Serious: Yes (Other)
  Sender: FDA-Public Use
  Company Number: US-PFIZER INC-2007002991

PATIENT
  Sex: Male
  Weight: 98.9 kg

DRUGS (4)
  1. LYRICA [Suspect]
     Indication: ARTHRALGIA
     Route: 048
     Dates: start: 20060801
  2. LORTAB [Concomitant]
     Route: 048
  3. FLEXERIL [Concomitant]
     Route: 048
  4. PRILOSEC [Concomitant]
     Route: 048

REACTIONS (6)
  - COLD SWEAT [None]
  - DEPRESSION [None]
  - DIARRHOEA [None]
  - DRUG DEPENDENCE [None]
  - VOMITING [None]
  - WEIGHT INCREASED [None]
